FAERS Safety Report 5946223-1 (Version None)
Quarter: 2008Q4

REPORT INFORMATION
  Report Type: 
  Country: None (occurrence: None)
  Receive Date: 20081106
  Receipt Date: 20081106
  Transmission Date: 20090506
  Serious: No
  Sender: FDA-Public Use
  Company Number: None

PATIENT
  Age: 68 Year
  Sex: Male
  Weight: 104.3273 kg

DRUGS (1)
  1. ZEGERID [Suspect]
     Indication: DYSPEPSIA
     Dosage: 1 CAPSULE DAILY PO
     Route: 048
     Dates: start: 20081031, end: 20081104

REACTIONS (1)
  - DRUG HYPERSENSITIVITY [None]
